FAERS Safety Report 24681974 (Version 1)
Quarter: 2024Q4

REPORT INFORMATION
  Report Type: Spontaneous
  Country: PL (occurrence: PL)
  Receive Date: 20241130
  Receipt Date: 20241130
  Transmission Date: 20250115
  Serious: Yes (Other)
  Sender: ALEXION PHARMACEUTICALS
  Company Number: PL-ASTRAZENECA-202411EEA017113PL

PATIENT
  Age: 44 Year

DRUGS (2)
  1. SAPHNELO [Suspect]
     Active Substance: ANIFROLUMAB-FNIA
     Indication: Shrinking lung syndrome
     Dosage: 300 MILLIGRAM, QMONTH
  2. SAPHNELO [Suspect]
     Active Substance: ANIFROLUMAB-FNIA
     Indication: Systemic lupus erythematosus

REACTIONS (2)
  - Shrinking lung syndrome [Unknown]
  - Sleep disorder due to general medical condition, insomnia type [Unknown]
